FAERS Safety Report 6919878-2 (Version None)
Quarter: 2010Q3

REPORT INFORMATION
  Report Type: 
  Country: None (occurrence: None)
  Receive Date: 20100811
  Receipt Date: 20100804
  Transmission Date: 20110219
  Serious: Yes (Hospitalization)
  Sender: FDA-Public Use
  Company Number: A0865994A

PATIENT
  Age: 55 Year
  Sex: Male

DRUGS (1)
  1. AVANDIA [Suspect]
     Dosage: 4MG PER DAY
     Route: 065
     Dates: start: 19991201, end: 20070418

REACTIONS (6)
  - ANXIETY [None]
  - CARDIAC FAILURE CONGESTIVE [None]
  - GASTROOESOPHAGEAL REFLUX DISEASE [None]
  - GOUT [None]
  - MYOCARDIAL INFARCTION [None]
  - NEUROPATHY PERIPHERAL [None]
